FAERS Safety Report 9056596 (Version 1)
Quarter: 2013Q1

REPORT INFORMATION
  Report Type: Spontaneous
  Country: US (occurrence: US)
  Receive Date: 20130204
  Receipt Date: 20130204
  Transmission Date: 20140127
  Serious: Yes (Death)
  Sender: FDA-Public Use
  Company Number: CHPA2013US001997

PATIENT
  Sex: 0

DRUGS (1)
  1. PRIVATE LABEL STRENGTH UNKNOWN [Suspect]
     Indication: SMOKING CESSATION THERAPY
     Dosage: UNK, UNK
     Route: 062

REACTIONS (3)
  - Death [Fatal]
  - Overdose [Unknown]
  - Treatment noncompliance [Unknown]
